FAERS Safety Report 9910144 (Version 1)
Quarter: 2014Q1

REPORT INFORMATION
  Report Type: Spontaneous
  Country: US (occurrence: None)
  Receive Date: 20140212
  Receipt Date: 20140212
  Transmission Date: 20141002
  Serious: Yes (Other)
  Sender: FDA-Public Use
  Company Number: CIO14008521

PATIENT
  Sex: 0

DRUGS (1)
  1. VICKS VAPORUB [Suspect]

REACTIONS (3)
  - Convulsion [None]
  - Drug hypersensitivity [None]
  - Epistaxis [None]
